FAERS Safety Report 16332266 (Version 1)
Quarter: 2019Q2

REPORT INFORMATION
  Report Type: Spontaneous
  Country: US (occurrence: US)
  Receive Date: 20190412
  Receipt Date: 20190412
  Transmission Date: 20190711
  Serious: Yes (Hospitalization)
  Sender: FDA-Public Use
  Company Number: None

PATIENT
  Age: 59 Year
  Sex: Male

DRUGS (12)
  1. SILDENAFIL. [Concomitant]
     Active Substance: SILDENAFIL
  2. PANTOPRAZOLE [Concomitant]
     Active Substance: PANTOPRAZOLE
  3. ASPIRIN. [Concomitant]
     Active Substance: ASPIRIN
  4. MIDODRINE [Concomitant]
     Active Substance: MIDODRINE
  5. FOLIC ACID. [Concomitant]
     Active Substance: FOLIC ACID
  6. QVAR [Concomitant]
     Active Substance: BECLOMETHASONE DIPROPIONATE
  7. MOTOPROLOOL [Concomitant]
  8. FULL SPECTRUM [Concomitant]
  9. B-VITAMIN C [Concomitant]
  10. LETAIRIS [Suspect]
     Active Substance: AMBRISENTAN
     Indication: MULTIPLE CARDIAC DEFECTS
     Route: 048
     Dates: start: 201802
  11. BENZONATATE. [Concomitant]
     Active Substance: BENZONATATE
  12. VITAMIN D3 [Concomitant]
     Active Substance: CHOLECALCIFEROL

REACTIONS (1)
  - Acute respiratory failure [None]

NARRATIVE: CASE EVENT DATE: 20190308
